FAERS Safety Report 19354625 (Version 2)
Quarter: 2023Q1

REPORT INFORMATION
  Report Type: Spontaneous
  Country: CA (occurrence: CA)
  Receive Date: 20210531
  Receipt Date: 20230320
  Transmission Date: 20230417
  Serious: Yes (Hospitalization, Other)
  Sender: FDA-Public Use
  Company Number: CA-NOVARTISPH-NVSC2021CA114323

PATIENT
  Age: 58 Year
  Sex: Female

DRUGS (13)
  1. AFINITOR [Suspect]
     Active Substance: EVEROLIMUS
     Indication: Breast cancer
     Dosage: UNK
     Route: 048
  2. AFINITOR [Suspect]
     Active Substance: EVEROLIMUS
     Dosage: UNK
     Route: 048
  3. LETROZOLE [Suspect]
     Active Substance: LETROZOLE
     Indication: Metastases to peritoneum
     Dosage: UNK
     Route: 065
  4. LETROZOLE [Suspect]
     Active Substance: LETROZOLE
     Dosage: UNK
     Route: 065
  5. EXEMESTANE [Suspect]
     Active Substance: EXEMESTANE
     Indication: Breast cancer
     Dosage: UNK COATED TABLET
     Route: 065
  6. EXEMESTANE [Suspect]
     Active Substance: EXEMESTANE
     Dosage: UNK TABLETS
     Route: 065
  7. FULVESTRANT [Suspect]
     Active Substance: FULVESTRANT
     Indication: Breast cancer
     Dosage: 183.0 UNK
     Route: 030
  8. FULVESTRANT [Suspect]
     Active Substance: FULVESTRANT
     Dosage: UNK
     Route: 030
  9. PACLITAXEL [Suspect]
     Active Substance: PACLITAXEL
     Indication: Breast cancer
     Dosage: UNK
     Route: 065
  10. PACLITAXEL [Suspect]
     Active Substance: PACLITAXEL
     Dosage: LIQUID INTRAVENOUS
     Route: 065
  11. PACLITAXEL [Suspect]
     Active Substance: PACLITAXEL
     Dosage: UNK
     Route: 042
  12. TAMOXIFEN [Suspect]
     Active Substance: TAMOXIFEN
     Indication: Breast cancer
     Dosage: UNK
     Route: 048
  13. TAMOXIFEN [Suspect]
     Active Substance: TAMOXIFEN
     Dosage: UNK
     Route: 048

REACTIONS (5)
  - Abdominal discomfort [Unknown]
  - Malaise [Unknown]
  - Toxicity to various agents [Unknown]
  - Nausea [Unknown]
  - Decreased appetite [Unknown]
